FAERS Safety Report 9804267 (Version 2)
Quarter: 2014Q1

REPORT INFORMATION
  Report Type: Spontaneous
  Country: JP (occurrence: JP)
  Receive Date: 20140108
  Receipt Date: 20140113
  Transmission Date: 20141002
  Serious: Yes (Other)
  Sender: FDA-Public Use
  Company Number: JP-B.I. PHARMACEUTICALS,INC./RIDGEFIELD-2014-BI-00796NB

PATIENT
  Age: 49 Year
  Sex: Male

DRUGS (2)
  1. PRAZAXA [Suspect]
     Indication: CEREBROVASCULAR ACCIDENT PROPHYLAXIS
     Dosage: 300 MG
     Route: 048
  2. INSULIN (INSULIN) [Concomitant]
     Indication: DIABETES MELLITUS

REACTIONS (1)
  - Cerebral infarction [Recovered/Resolved with Sequelae]
